FAERS Safety Report 4747898-5 (Version None)
Quarter: 2005Q3

REPORT INFORMATION
  Report Type: 
  Country: None (occurrence: None)
  Receive Date: 20050817
  Receipt Date: 20050817
  Transmission Date: 20060218
  Serious: Yes (Death)
  Sender: FDA-Public Use
  Company Number: None

PATIENT
  Age: 62 Year
  Sex: Female
  Weight: 97.5234 kg

DRUGS (1)
  1. FENTANYL [Suspect]
     Indication: PAIN
     Dosage: 50MG EVERY 72 HOURS TRANSDERMAL
     Route: 062
     Dates: start: 20050526, end: 20050604

REACTIONS (20)
  - ABDOMINAL DISTENSION [None]
  - ACCIDENTAL OVERDOSE [None]
  - ANOXIC ENCEPHALOPATHY [None]
  - ASTHENIA [None]
  - BLOOD PRESSURE IMMEASURABLE [None]
  - CARDIAC ARREST [None]
  - CONVULSION [None]
  - DIAPHRAGMATIC RUPTURE [None]
  - HYPOVENTILATION [None]
  - IATROGENIC INJURY [None]
  - INTESTINAL INFARCTION [None]
  - LETHARGY [None]
  - MALAISE [None]
  - POST PROCEDURAL NAUSEA [None]
  - RENAL FAILURE [None]
  - RESPIRATORY RATE DECREASED [None]
  - SEPTIC SHOCK [None]
  - SPEECH DISORDER [None]
  - TREMOR [None]
  - WHITE BLOOD CELL COUNT DECREASED [None]
